FAERS Safety Report 8277098-6 (Version None)
Quarter: 2012Q2

REPORT INFORMATION
  Report Type: 
  Country: None (occurrence: None)
  Receive Date: 20120412
  Receipt Date: 20120328
  Transmission Date: 20120825
  Serious: Yes (Hospitalization)
  Sender: FDA-Public Use
  Company Number: US-ROCHE-1049331

PATIENT
  Age: 70 Year
  Sex: Female

DRUGS (13)
  1. METOPROLOL TARTRATE [Concomitant]
     Route: 048
  2. ALOXI [Concomitant]
  3. PACLITAXEL [Suspect]
     Indication: UTERINE CANCER
     Route: 042
     Dates: start: 20111014, end: 20120310
  4. SIMVASTATIN [Concomitant]
     Route: 048
  5. BENADRYL [Concomitant]
  6. POTASSIUM CHLORIDE [Concomitant]
  7. CALCIUM CARBONATE [Concomitant]
  8. VITAMIN D [Concomitant]
  9. HERCEPTIN [Suspect]
     Indication: UTERINE CANCER
     Dates: start: 20111014, end: 20120310
  10. LASIX [Concomitant]
     Route: 048
  11. DECADRON [Concomitant]
  12. CARBOPLATIN [Suspect]
     Indication: UTERINE CANCER
     Route: 042
     Dates: start: 20111014, end: 20120310
  13. PEPCID [Concomitant]

REACTIONS (4)
  - BLOOD PRESSURE INCREASED [None]
  - PRURITUS [None]
  - ERYTHEMA [None]
  - BACK PAIN [None]
